FAERS Safety Report 4381431-5 (Version None)
Quarter: 2004Q2

REPORT INFORMATION
  Report Type: 
  Country: None (occurrence: None)
  Receive Date: 20040617
  Receipt Date: 20040617
  Transmission Date: 20050107
  Serious: Yes (Death)
  Sender: FDA-Public Use
  Company Number: None

PATIENT
  Sex: Female
  Weight: 70.7611 kg

DRUGS (2)
  1. ALIMTA [Suspect]
     Indication: METASTATIC RENAL CELL CARCINOMA
     Dosage: 750 MG ONCE INTRAVENOUS
     Route: 042
     Dates: start: 20040326, end: 20040326
  2. AVASTIN [Suspect]
     Indication: METASTATIC RENAL CELL CARCINOMA
     Dosage: 375 MG ONCE INTRAVENOUS
     Route: 042
     Dates: start: 20040319, end: 20040319

REACTIONS (7)
  - BLOOD PRESSURE INCREASED [None]
  - CARDIO-RESPIRATORY ARREST [None]
  - DEPRESSED LEVEL OF CONSCIOUSNESS [None]
  - FOAMING AT MOUTH [None]
  - HEART RATE INCREASED [None]
  - MENTAL STATUS CHANGES [None]
  - SUBDURAL HAEMATOMA [None]
